FAERS Safety Report 4509486-5 (Version None)
Quarter: 2004Q4

REPORT INFORMATION
  Report Type: 
  Country: None (occurrence: None)
  Receive Date: 20041119
  Receipt Date: 20041029
  Transmission Date: 20050328
  Serious: Yes (Hospitalization, Other)
  Sender: FDA-Public Use
  Company Number: USA040772007

PATIENT
  Age: 82 Year
  Sex: Female
  Weight: 55 kg

DRUGS (21)
  1. FORTEO [Suspect]
     Indication: BONE DISORDER
     Dosage: 20 UG/1 DAY
     Dates: start: 20030101
  2. FORTEO [Suspect]
     Indication: OSTEOPOROSIS
     Dosage: 20 UG/1 DAY
     Dates: start: 20030101
  3. DIGOXIN [Concomitant]
  4. COUMADIN [Concomitant]
  5. PROPRANOLOL [Concomitant]
  6. PROVIGIL [Concomitant]
  7. FLONASE [Concomitant]
  8. FUROSEMIDE [Concomitant]
  9. LEVOTHROID [Concomitant]
  10. PRIMIDONE [Concomitant]
  11. LIPITOR [Concomitant]
  12. AMBIEN [Concomitant]
  13. MESCOLOR [Concomitant]
  14. OCTOVIT [Concomitant]
  15. MULTIVITAMIN [Concomitant]
  16. VITAMIN E [Concomitant]
  17. COLACE (DOCUSATE SODIUM) [Concomitant]
  18. FISH OIL [Concomitant]
  19. THIAMINE HCL [Concomitant]
  20. VITAMIN C [Concomitant]
  21. VITAMIN K [Concomitant]

REACTIONS (2)
  - BREAST CANCER STAGE II [None]
  - PHARMACEUTICAL PRODUCT COMPLAINT [None]
